FAERS Safety Report 23343838 (Version 1)
Quarter: 2023Q4

REPORT INFORMATION
  Report Type: Spontaneous
  Country: CL (occurrence: CL)
  Receive Date: 20231227
  Receipt Date: 20231227
  Transmission Date: 20240109
  Serious: Yes (Hospitalization, Other)
  Sender: FDA-Public Use
  Company Number: CL-MYLANLABS-2023M1136721

PATIENT
  Age: 30 Year
  Sex: Male
  Weight: 77 kg

DRUGS (3)
  1. CLOZAPINE [Suspect]
     Active Substance: CLOZAPINE
     Indication: Psychotic disorder
     Dosage: 300 MILLIGRAM, DAILY
     Route: 048
     Dates: start: 20231006, end: 20231110
  2. VALPROIC ACID [Concomitant]
     Active Substance: VALPROIC ACID
     Indication: Psychotic disorder
     Dosage: 1125 MILLIGRAM, DAILY
     Route: 048
     Dates: end: 20231011
  3. QUETIAPINE [Concomitant]
     Active Substance: QUETIAPINE
     Indication: Psychotic disorder
     Dosage: 400 MILLIGRAM
     Route: 048
     Dates: end: 20231011

REACTIONS (3)
  - Drug-induced liver injury [Not Recovered/Not Resolved]
  - Off label use [Unknown]
  - Eosinophilia [Unknown]

NARRATIVE: CASE EVENT DATE: 20231006
